FAERS Safety Report 26082217 (Version 1)
Quarter: 2025Q4

REPORT INFORMATION
  Report Type: Spontaneous
  Country: US (occurrence: US)
  Receive Date: 20251124
  Receipt Date: 20251124
  Transmission Date: 20260118
  Serious: Yes (Other)
  Sender: PROVEPHARM
  Company Number: US-Provepharm-2189209

PATIENT
  Age: 43 Year
  Sex: Male

DRUGS (1)
  1. PROVAYBLUE [Suspect]
     Active Substance: METHYLENE BLUE
     Indication: Shock

REACTIONS (3)
  - Physical thyroid examination abnormal [Unknown]
  - Product use in unapproved indication [Unknown]
  - Hypothyroidism [Recovering/Resolving]
